FAERS Safety Report 8591099-X (Version None)
Quarter: 2012Q3

REPORT INFORMATION
  Report Type: 
  Country: None (occurrence: None)
  Receive Date: 20120813
  Receipt Date: 20120725
  Transmission Date: 20120928
  Serious: Yes (Hospitalization)
  Sender: FDA-Public Use
  Company Number: CHPA2012US017691

PATIENT

DRUGS (1)
  1. EXCEDRIN EXTRA STRENGTH CAPLETS [Suspect]
     Dosage: 2 DF, ONCE/SINGLE
     Route: 048

REACTIONS (2)
  - HYPERTENSION [None]
  - PALPITATIONS [None]
